FAERS Safety Report 9196796 (Version 2)
Quarter: 2013Q2

REPORT INFORMATION
  Report Type: Spontaneous
  Country: US (occurrence: US)
  Receive Date: 20130328
  Receipt Date: 20130412
  Transmission Date: 20140414
  Serious: Yes (Other)
  Sender: FDA-Public Use
  Company Number: CHPA2013US005233

PATIENT
  Age: 62 Year
  Sex: Female

DRUGS (5)
  1. EXCEDRIN EXTRA STRENGTH [Suspect]
     Indication: SINUS HEADACHE
     Dosage: 2 DF, BID
     Route: 048
  2. EXCEDRIN EXTRA STRENGTH [Suspect]
     Indication: BACK PAIN
  3. EXCEDRIN EXTRA STRENGTH [Suspect]
     Indication: ARTHRITIS
  4. EXCEDRIN EXTRA STRENGTH [Suspect]
     Indication: PAIN
  5. EXCEDRIN EXTRA STRENGTH [Suspect]
     Indication: NEPHROLITHIASIS

REACTIONS (4)
  - Nephrolithiasis [Unknown]
  - Therapeutic response unexpected [Unknown]
  - Off label use [Unknown]
  - Incorrect drug administration duration [Unknown]
